FAERS Safety Report 8003561-9 (Version None)
Quarter: 2011Q4

REPORT INFORMATION
  Report Type: 
  Country: None (occurrence: None)
  Receive Date: 20111222
  Receipt Date: 20111215
  Transmission Date: 20120403
  Serious: Yes (Death)
  Sender: FDA-Public Use
  Company Number: US-CELGENEUS-163-21880-11083117

PATIENT
  Sex: Male

DRUGS (9)
  1. SYNTHROID [Concomitant]
     Dosage: 50 MICROGRAM
     Route: 065
  2. SIROLIMUS [Concomitant]
     Route: 065
     Dates: start: 20110101
  3. HYDROCORTISONE [Concomitant]
     Route: 065
  4. ANTICOAGULANT [Concomitant]
     Route: 065
  5. LOVENOX [Concomitant]
     Dosage: 40
     Route: 058
  6. REVLIMID [Suspect]
     Dosage: 10 MILLIGRAM
     Route: 048
     Dates: start: 20110601
  7. REVLIMID [Suspect]
     Dosage: 25 MILLIGRAM
     Route: 048
     Dates: start: 20110705, end: 20110818
  8. LOPRESSOR [Concomitant]
     Indication: HYPERTENSION
     Dosage: 12.5
     Route: 065
  9. ATROVENT [Concomitant]
     Indication: ASTHMA
     Dosage: 2 PUFFS
     Route: 065

REACTIONS (2)
  - INFECTION [None]
  - SUDDEN DEATH [None]
